FAERS Safety Report 6102695-3 (Version None)
Quarter: 2009Q1

REPORT INFORMATION
  Report Type: 
  Country: None (occurrence: None)
  Receive Date: 20090304
  Receipt Date: 20070410
  Transmission Date: 20090719
  Serious: Yes (Other)
  Sender: FDA-Public Use
  Company Number: B0466467A

PATIENT
  Age: 66 Year
  Sex: Male
  Weight: 71 kg

DRUGS (4)
  1. ADARTREL [Suspect]
     Dosage: 250UG TWICE PER DAY
     Route: 048
     Dates: start: 20060801, end: 20061201
  2. TAMSULOSIN HYDROCHLORIDE [Concomitant]
     Dosage: 400UG UNKNOWN
     Route: 048
     Dates: start: 20051228
  3. SILDENAFIL CITRATE [Concomitant]
     Dosage: 50MG AS REQUIRED
     Route: 065
  4. FLUOXETINE [Concomitant]
     Dates: start: 20061201

REACTIONS (1)
  - SUDDEN ONSET OF SLEEP [None]
